FAERS Safety Report 4701040-5 (Version None)
Quarter: 2005Q2

REPORT INFORMATION
  Report Type: 
  Country: None (occurrence: None)
  Receive Date: 20050624
  Receipt Date: 20040920
  Transmission Date: 20051028
  Serious: Yes (Other)
  Sender: FDA-Public Use
  Company Number: 380948

PATIENT
  Sex: Male
  Weight: 80.8 kg

DRUGS (2)
  1. XELODA [Suspect]
     Dosage: 1000 MG 2 PER DAY ORAL
     Route: 048
     Dates: start: 20040913, end: 20040917
  2. ELOXATIN [Concomitant]

REACTIONS (1)
  - ANGINA PECTORIS [None]
